FAERS Safety Report 19011066 (Version 1)
Quarter: 2021Q1

REPORT INFORMATION
  Report Type: Spontaneous
  Country: US (occurrence: US)
  Receive Date: 20210315
  Receipt Date: 20210315
  Transmission Date: 20210420
  Serious: No
  Sender: FDA-Public Use
  Company Number: None

PATIENT
  Age: 66 Year
  Sex: Male
  Weight: 117 kg

DRUGS (2)
  1. HEPARIN SODIUM INJECTION 10,000 UNITS / 10 ML [Suspect]
     Active Substance: HEPARIN SODIUM
     Indication: LABORATORY TEST
     Dosage: ?          OTHER FREQUENCY:ONCE;?
     Route: 042
     Dates: start: 20210315, end: 20210315
  2. HEPARIN SODIUM INJECTION 10,000 UNITS / 10 ML [Suspect]
     Active Substance: HEPARIN SODIUM
     Indication: VASCULAR CATHETERISATION
     Dosage: ?          OTHER FREQUENCY:ONCE;?
     Route: 042
     Dates: start: 20210315, end: 20210315

REACTIONS (2)
  - Product quality issue [None]
  - Coagulation time shortened [None]

NARRATIVE: CASE EVENT DATE: 20210315
